FAERS Safety Report 11459945 (Version 2)
Quarter: 2015Q3

REPORT INFORMATION
  Report Type: Report from Study
  Country: DE (occurrence: DE)
  Receive Date: 20150904
  Receipt Date: 20150908
  Transmission Date: 20151125
  Serious: Yes (Hospitalization)
  Sender: FDA-Public Use
  Company Number: DE-ABBVIE-15P-062-1454979-00

PATIENT
  Age: 39 Year
  Sex: Female
  Weight: 55 kg

DRUGS (2)
  1. HUMIRA [Suspect]
     Active Substance: ADALIMUMAB
     Indication: PRODUCT USED FOR UNKNOWN INDICATION
     Route: 058
     Dates: start: 20120607
  2. HUMIRA [Suspect]
     Active Substance: ADALIMUMAB
     Route: 058
     Dates: end: 201405

REACTIONS (4)
  - Abscess [Unknown]
  - Drug effect decreased [Unknown]
  - Gastrointestinal neoplasm [Recovered/Resolved]
  - Body temperature increased [Unknown]

NARRATIVE: CASE EVENT DATE: 20140217
